FAERS Safety Report 17051763 (Version 2)
Quarter: 2019Q4

REPORT INFORMATION
  Report Type: Report from Study
  Country: KR (occurrence: KR)
  Receive Date: 20191120
  Receipt Date: 20191127
  Transmission Date: 20200122
  Serious: Yes (Other)
  Sender: FDA-Public Use
  Company Number: KR-ACCORD-161336

PATIENT
  Age: 35 Year
  Sex: Female

DRUGS (1)
  1. TOPIRAMATE. [Suspect]
     Active Substance: TOPIRAMATE
     Indication: WEIGHT DECREASED

REACTIONS (3)
  - Angle closure glaucoma [Recovered/Resolved]
  - Pseudomyopia [Recovered/Resolved]
  - Choroidal effusion [Recovered/Resolved]
